FAERS Safety Report 19087421 (Version 1)
Quarter: 2021Q2

REPORT INFORMATION
  Report Type: Spontaneous
  Country: US (occurrence: US)
  Receive Date: 20210402
  Receipt Date: 20210402
  Transmission Date: 20210717
  Serious: No
  Sender: FDA-Public Use
  Company Number: US-MYLANLABS-2021M1018438

PATIENT
  Sex: Female

DRUGS (1)
  1. LANSOPRAZOLE DELAYED?RELEASE ORALLY DISINTEGRATING TABLETS [Suspect]
     Active Substance: LANSOPRAZOLE
     Indication: PRODUCT USED FOR UNKNOWN INDICATION
     Dosage: UNK
     Route: 048

REACTIONS (7)
  - Swollen tongue [Unknown]
  - Dry mouth [Unknown]
  - Candida infection [Not Recovered/Not Resolved]
  - Rhinorrhoea [Unknown]
  - Pharyngeal swelling [Unknown]
  - Nasal congestion [Unknown]
  - Mouth ulceration [Unknown]
